FAERS Safety Report 20032441 (Version 1)
Quarter: 2021Q4

REPORT INFORMATION
  Report Type: Spontaneous
  Country: US (occurrence: US)
  Receive Date: 20211103
  Receipt Date: 20211103
  Transmission Date: 20220303
  Serious: No
  Sender: FDA-Public Use
  Company Number: US-ALLERGAN-2124513US

PATIENT
  Age: 33 Year
  Sex: Male

DRUGS (2)
  1. VRAYLAR [Suspect]
     Active Substance: CARIPRAZINE
     Indication: Bipolar I disorder
     Dosage: 4.5 MG
  2. VRAYLAR [Suspect]
     Active Substance: CARIPRAZINE
     Indication: Depression

REACTIONS (1)
  - Off label use [Unknown]
